FAERS Safety Report 23641954 (Version 1)
Quarter: 2024Q1

REPORT INFORMATION
  Report Type: Spontaneous
  Country: SY (occurrence: SY)
  Receive Date: 20240318
  Receipt Date: 20240318
  Transmission Date: 20240410
  Serious: Yes (Hospitalization, Other)
  Sender: FDA-Public Use
  Company Number: SY-AMNEAL PHARMACEUTICALS-2024-AMRX-00805

PATIENT
  Age: 35 Year
  Sex: Male

DRUGS (4)
  1. CARBAMAZEPINE [Suspect]
     Active Substance: CARBAMAZEPINE
     Indication: Generalised tonic-clonic seizure
     Dosage: UNK
     Route: 065
  2. DIAZEPAM [Suspect]
     Active Substance: DIAZEPAM
     Indication: Generalised tonic-clonic seizure
     Dosage: 5 AMPULES
     Route: 042
  3. LAMOTRIGINE [Concomitant]
     Active Substance: LAMOTRIGINE
     Indication: Generalised tonic-clonic seizure
     Dosage: UNK
     Route: 065
  4. LEVETIRACETAM [Concomitant]
     Active Substance: LEVETIRACETAM
     Indication: Generalised tonic-clonic seizure
     Dosage: UNK
     Route: 065

REACTIONS (6)
  - Liver injury [Recovering/Resolving]
  - Acute kidney injury [Recovering/Resolving]
  - Neurotoxicity [Recovering/Resolving]
  - Hepatotoxicity [Recovering/Resolving]
  - Rhabdomyolysis [Recovering/Resolving]
  - Disseminated intravascular coagulation [Recovering/Resolving]
